FAERS Safety Report 4842301-9 (Version None)
Quarter: 2005Q4

REPORT INFORMATION
  Report Type: 
  Country: None (occurrence: None)
  Receive Date: 20051129
  Receipt Date: 20051114
  Transmission Date: 20060501
  Serious: Yes (Hospitalization, Other)
  Sender: FDA-Public Use
  Company Number: 2005155329

PATIENT
  Age: 32 Year
  Sex: Female
  Weight: 50 kg

DRUGS (5)
  1. CLINDAMYCIN HCL [Suspect]
     Indication: ILL-DEFINED DISORDER
     Dosage: 2400 MG (EVERY DAY), ORAL
     Route: 048
     Dates: start: 20050918, end: 20051001
  2. FOSAMPRENAVIR                     (FOSAMPRENAVIR) [Suspect]
     Indication: ILL-DEFINED DISORDER
     Dosage: 1400 MG (EVERY DAY), ORAL
     Route: 048
     Dates: start: 20050920, end: 20050930
  3. PREDNISONE [Concomitant]
  4. PYRIMETHAMINE TAB [Concomitant]
  5. SULFADIAZINE [Concomitant]

REACTIONS (24)
  - BLOOD TRIGLYCERIDES INCREASED [None]
  - BRAIN NATRIURETIC PEPTIDE INCREASED [None]
  - CARDIOMYOPATHY [None]
  - CYTOLYTIC HEPATITIS [None]
  - DRUG HYPERSENSITIVITY [None]
  - ELECTROCARDIOGRAM T WAVE INVERSION [None]
  - EYE DISORDER [None]
  - FACE OEDEMA [None]
  - GENERAL PHYSICAL HEALTH DETERIORATION [None]
  - HAEMOGLOBIN DECREASED [None]
  - HEPATOCELLULAR DAMAGE [None]
  - HISTIOCYTOSIS HAEMATOPHAGIC [None]
  - LYMPHADENOPATHY [None]
  - LYMPHOPENIA [None]
  - MULTI-ORGAN DISORDER [None]
  - PAIN [None]
  - PROTEINURIA [None]
  - RASH MACULO-PAPULAR [None]
  - RASH SCARLATINIFORM [None]
  - RENAL DISORDER [None]
  - SERUM FERRITIN INCREASED [None]
  - TOXOPLASMOSIS [None]
  - VISUAL ACUITY REDUCED [None]
  - VOMITING [None]
